FAERS Safety Report 22613215 (Version 2)
Quarter: 2024Q2

REPORT INFORMATION
  Report Type: Report from Study
  Country: FR (occurrence: FR)
  Receive Date: 20230618
  Receipt Date: 20240531
  Transmission Date: 20240716
  Serious: Yes (Other)
  Sender: FDA-Public Use
  Company Number: FR-AMGEN-FRASP2022229855

PATIENT
  Age: 67 Year
  Sex: Male
  Weight: 69 kg

DRUGS (3)
  1. SOTORASIB [Suspect]
     Active Substance: SOTORASIB
     Indication: Lung adenocarcinoma
     Dosage: 960 MILLIGRAM, QD, 120 MG FILM COATED TABLET
     Route: 048
     Dates: start: 20210609, end: 20220620
  2. ACETAMINOPHEN\OPIUM [Concomitant]
     Active Substance: ACETAMINOPHEN\OPIUM
  3. METFORMIN HYDROCHLORIDE [Concomitant]
     Active Substance: METFORMIN HYDROCHLORIDE

REACTIONS (1)
  - Mixed liver injury [Recovered/Resolved]

NARRATIVE: CASE EVENT DATE: 20220620
